FAERS Safety Report 8580230-8 (Version None)
Quarter: 2012Q3

REPORT INFORMATION
  Report Type: 
  Country: None (occurrence: None)
  Receive Date: 20120808
  Receipt Date: 20120802
  Transmission Date: 20120928
  Serious: Yes (Other)
  Sender: FDA-Public Use
  Company Number: US-PFIZER INC-2012188681

PATIENT
  Age: 44 Year
  Sex: Male

DRUGS (3)
  1. CIALIS [Concomitant]
     Dosage: UNK
  2. LYRICA [Suspect]
     Dosage: 150 MG, 4X/DAY
  3. CYCLOBENZAPRINE [Concomitant]
     Dosage: UNK

REACTIONS (1)
  - ACCIDENT [None]
